FAERS Safety Report 6410744-8 (Version None)
Quarter: 2009Q4

REPORT INFORMATION
  Report Type: 
  Country: None (occurrence: None)
  Receive Date: 20091020
  Receipt Date: 20091020
  Transmission Date: 20100525
  Serious: Yes (Hospitalization)
  Sender: FDA-Public Use
  Company Number: None

PATIENT
  Sex: Male
  Weight: 80 kg

DRUGS (2)
  1. MS CONTIN [Suspect]
     Indication: PAIN
     Dosage: 60 MG BID PO
     Route: 048
  2. MORPHINE [Suspect]
     Indication: PAIN
     Dosage: IV BOLUS
     Route: 040

REACTIONS (1)
  - RESPIRATORY RATE DECREASED [None]
